FAERS Safety Report 5738139-0 (Version None)
Quarter: 2008Q2

REPORT INFORMATION
  Report Type: 
  Country: None (occurrence: None)
  Receive Date: 20080514
  Receipt Date: 20080502
  Transmission Date: 20081010
  Serious: Yes (Hospitalization, Other)
  Sender: FDA-Public Use
  Company Number: JP-PFIZER INC-2008039293

PATIENT
  Age: 76 Year
  Sex: Male

DRUGS (2)
  1. CABERGOLINE [Suspect]
     Indication: PARKINSON'S DISEASE
     Route: 048
  2. PERGOLIDE MESYLATE [Concomitant]
     Route: 048

REACTIONS (3)
  - CARDIAC FAILURE [None]
  - MITRAL VALVE INCOMPETENCE [None]
  - MITRAL VALVE STENOSIS [None]
